FAERS Safety Report 5964522-4 (Version None)
Quarter: 2008Q4

REPORT INFORMATION
  Report Type: 
  Country: None (occurrence: None)
  Receive Date: 20081122
  Receipt Date: 20081122
  Transmission Date: 20090506
  Serious: Yes (Other)
  Sender: FDA-Public Use
  Company Number: None

PATIENT
  Sex: Male
  Weight: 63.5036 kg

DRUGS (21)
  1. GABAPENTIN [Suspect]
     Indication: AMPUTATION
     Dosage: 1 CAP (START) DAY BEDTIME
  2. PROMETHAZINE [Concomitant]
  3. SEVELAMER HCL [Concomitant]
  4. LEVOTHYROXINE SODIUM [Concomitant]
  5. NIFEDIPINE [Concomitant]
  6. LISINOPRIL [Concomitant]
  7. METOPROLOL TARTRATE [Concomitant]
  8. ISOSORBIDE DINITRATE [Concomitant]
  9. CLOPIDOGREL BISULFATE [Concomitant]
  10. SERTRALINE HCL [Concomitant]
  11. OMEPRAZOLE [Concomitant]
  12. ACETAMINOPHEN AND HYDROCODONE BITARTRATE [Concomitant]
  13. ZINC [Concomitant]
  14. NEPHRO-VITE [Concomitant]
  15. FOLIC ACID [Concomitant]
  16. ASPIRIN [Concomitant]
  17. FLUNISOLIDE [Concomitant]
  18. STOOL SOFTENER [Concomitant]
  19. QUININE SULFATE [Concomitant]
  20. NITROGLYCERIN [Concomitant]
  21. GENTAMICIN SULFATE [Concomitant]

REACTIONS (14)
  - AMNESIA [None]
  - BACK PAIN [None]
  - COORDINATION ABNORMAL [None]
  - DIZZINESS [None]
  - DRY MOUTH [None]
  - DYSPNOEA [None]
  - HALLUCINATION [None]
  - JOINT SWELLING [None]
  - MENTAL STATUS CHANGES [None]
  - MOOD ALTERED [None]
  - OROPHARYNGEAL PAIN [None]
  - SPEECH DISORDER [None]
  - TREMOR [None]
  - VISUAL IMPAIRMENT [None]
